FAERS Safety Report 6406497-X (Version None)
Quarter: 2009Q4

REPORT INFORMATION
  Report Type: 
  Country: None (occurrence: None)
  Receive Date: 20091019
  Receipt Date: 20091006
  Transmission Date: 20100525
  Serious: Yes (Death, Hospitalization, Other)
  Sender: FDA-Public Use
  Company Number: IT-GENENTECH-284750

PATIENT

DRUGS (5)
  1. MABTHERA [Suspect]
     Indication: WALDENSTROM'S MACROGLOBULINAEMIA
     Dosage: 375 MG/M2, UNK
     Route: 042
  2. FLUDARABINE [Suspect]
     Indication: WALDENSTROM'S MACROGLOBULINAEMIA
     Dosage: 25 MG/M2, UNK
     Route: 042
  3. CYCLOPHOSPHAMIDE [Suspect]
     Indication: WALDENSTROM'S MACROGLOBULINAEMIA
     Dosage: 250 MG/M2, UNK
     Route: 042
  4. SULFAMETHOXAZOLE AND TRIMETHOPRIM [Suspect]
     Indication: INFECTION PROPHYLAXIS
     Dosage: 800 MG, 3/WEEK
     Route: 065
  5. ACYCLOVIR [Suspect]
     Indication: INFECTION PROPHYLAXIS
     Dosage: 800 MG, UNK
     Route: 065

REACTIONS (10)
  - ASPERGILLOSIS [None]
  - ASTHENIA [None]
  - DEATH [None]
  - DERMATITIS ALLERGIC [None]
  - HAEMOLYTIC ANAEMIA [None]
  - MALIGNANT NEOPLASM PROGRESSION [None]
  - NEUTROPENIA [None]
  - PNEUMONIA [None]
  - PNEUMONITIS [None]
  - PYREXIA [None]
